FAERS Safety Report 9679942 (Version 2)
Quarter: 2013Q4

REPORT INFORMATION
  Report Type: Report from Study
  Country: BE (occurrence: BE)
  Receive Date: 20131110
  Receipt Date: 20131110
  Transmission Date: 20140711
  Serious: Yes (Hospitalization)
  Sender: FDA-Public Use
  Company Number: BE-ROCHE-1135776

PATIENT
  Age: 58 Year
  Sex: Female
  Weight: 55.7 kg

DRUGS (13)
  1. TRASTUZUMAB EMTANSINE [Suspect]
     Indication: BREAST CANCER
     Dosage: MOST RECENT DOSE PRIOR TO PANCREATITIS: 18/SEP/2012 WITH DOSE OF 214.92 MG?MOST RECENT DOSE PRIOR TO
     Route: 042
     Dates: start: 20111129
  2. ELTHYRONE [Concomitant]
     Indication: HYPOTHYROIDISM
     Route: 065
     Dates: start: 20030113
  3. ZYRTEC [Concomitant]
     Indication: PROPHYLAXIS
     Route: 065
     Dates: start: 20111129, end: 20130820
  4. MOTILIUM (BELGIUM) [Concomitant]
     Indication: PAIN
     Route: 065
     Dates: start: 20111127, end: 201112
  5. MOTILIUM (BELGIUM) [Concomitant]
     Indication: NAUSEA
     Route: 065
     Dates: start: 201309
  6. MOTILIUM (BELGIUM) [Concomitant]
     Indication: PROPHYLAXIS OF NAUSEA AND VOMITING
  7. ZANTAC [Concomitant]
     Dosage: 50 MG/2L
     Route: 042
     Dates: start: 20120919, end: 20120920
  8. ZANTAC [Concomitant]
     Route: 048
     Dates: start: 20120921, end: 20120921
  9. DULCOLAX (BISACODYL) [Concomitant]
     Indication: CONSTIPATION
     Route: 065
     Dates: start: 201304, end: 20130902
  10. LAXOBERON [Concomitant]
     Indication: CONSTIPATION
     Route: 065
     Dates: start: 20130830, end: 20130831
  11. LITICAN [Concomitant]
     Indication: PROPHYLAXIS OF NAUSEA AND VOMITING
     Route: 065
     Dates: start: 20130829, end: 20130902
  12. MOVICOL [Concomitant]
     Indication: CONSTIPATION
     Route: 065
     Dates: start: 20130830, end: 20130901
  13. PANTOMED (BELGIUM) [Concomitant]
     Route: 048
     Dates: start: 20120922

REACTIONS (2)
  - Pancreatitis [Recovered/Resolved]
  - Pancreatitis [Recovered/Resolved]
